FAERS Safety Report 5121195-0 (Version None)
Quarter: 2006Q4

REPORT INFORMATION
  Report Type: 
  Country: None (occurrence: None)
  Receive Date: 20061002
  Receipt Date: 20060915
  Transmission Date: 20070319
  Serious: Yes (Death)
  Sender: FDA-Public Use
  Company Number: 2006SP002308

PATIENT
  Sex: Male

DRUGS (1)
  1. TEMOZOLOMIDE (S-P) [Suspect]
     Indication: BRAIN NEOPLASM
     Dosage: PO
     Route: 048

REACTIONS (1)
  - DEATH [None]
